FAERS Safety Report 7288761-8 (Version None)
Quarter: 2011Q1

REPORT INFORMATION
  Report Type: 
  Country: None (occurrence: None)
  Receive Date: 20110211
  Receipt Date: 20110207
  Transmission Date: 20110831
  Serious: No
  Sender: FDA-Public Use
  Company Number: US-ROXANE LABORATORIES, INC.-2011-RO-00047RO

PATIENT
  Sex: Male

DRUGS (8)
  1. LISINOPRIL [Suspect]
     Indication: HYPERTENSION
     Route: 048
  2. POTASSIUM CHLORIDE [Concomitant]
  3. ALISKIREN [Suspect]
     Indication: HYPERTENSION
  4. CLONIDINE [Suspect]
     Indication: HYPERTENSION
     Route: 062
  5. FUROSEMIDE [Suspect]
     Indication: HYPERTENSION
     Route: 048
  6. MINOXIDIL [Suspect]
     Indication: HYPERTENSION
     Route: 048
  7. NEBIVOLOL [Suspect]
     Indication: HYPERTENSION
  8. CRESTOR [Concomitant]

REACTIONS (2)
  - DRUG INEFFECTIVE [None]
  - ABDOMINAL DISTENSION [None]
